FAERS Safety Report 6974230-9 (Version None)
Quarter: 2010Q3

REPORT INFORMATION
  Report Type: 
  Country: None (occurrence: None)
  Receive Date: 20100909
  Receipt Date: 20080207
  Transmission Date: 20110219
  Serious: No
  Sender: FDA-Public Use
  Company Number: US-WYE-H02518708

PATIENT
  Sex: Female

DRUGS (3)
  1. PROTONIX [Suspect]
     Route: 048
     Dates: start: 20050101
  2. ATROVENT [Concomitant]
  3. ALBUTEROL [Concomitant]

REACTIONS (1)
  - BURNING SENSATION [None]
